FAERS Safety Report 10022096 (Version 4)
Quarter: 2015Q1

REPORT INFORMATION
  Report Type: Spontaneous
  Country: FR (occurrence: FR)
  Receive Date: 20140319
  Receipt Date: 20150127
  Transmission Date: 20150720
  Serious: Yes (Hospitalization)
  Sender: FDA-Public Use
  Company Number: FR-MERCK-1403FRA005950

PATIENT
  Age: 64 Year
  Sex: Male

DRUGS (5)
  1. CANCIDAS [Suspect]
     Active Substance: CASPOFUNGIN ACETATE
     Dosage: 70 MG, QD
     Route: 042
     Dates: start: 20140128, end: 20140128
  2. ZYLORIC [Suspect]
     Active Substance: ALLOPURINOL
     Route: 065
  3. VANCOMYCIN [Concomitant]
     Active Substance: VANCOMYCIN
     Dosage: FROM 2 TO 3 G, QD
     Route: 042
     Dates: start: 20140127, end: 20140206
  4. CANCIDAS [Suspect]
     Active Substance: CASPOFUNGIN ACETATE
     Dosage: 50 MG, QD
     Route: 042
     Dates: start: 20140129, end: 20140204
  5. FLAGYL [Suspect]
     Active Substance: METRONIDAZOLE\METRONIDAZOLE HYDROCHLORIDE
     Dosage: 1.5 G, QD
     Route: 048
     Dates: start: 20140127, end: 20140210

REACTIONS (4)
  - Skin exfoliation [Recovered/Resolved]
  - Purpura [Recovered/Resolved]
  - Pyrexia [Recovered/Resolved]
  - Rash maculo-papular [Recovered/Resolved]

NARRATIVE: CASE EVENT DATE: 20140207
